FAERS Safety Report 23159066 (Version 1)
Quarter: 2023Q4

REPORT INFORMATION
  Report Type: Spontaneous
  Country: DE (occurrence: DE)
  Receive Date: 20231108
  Receipt Date: 20231108
  Transmission Date: 20240110
  Serious: Yes (Other)
  Sender: FDA-Public Use
  Company Number: DE-009507513-2311DEU001734

PATIENT
  Age: 77 Year
  Sex: Male

DRUGS (1)
  1. PEMBROLIZUMAB [Suspect]
     Active Substance: PEMBROLIZUMAB
     Indication: Laryngeal cancer
     Dosage: 200 MILLIGRAM, Q3W
     Dates: start: 20210301, end: 2023

REACTIONS (17)
  - Guillain-Barre syndrome [Unknown]
  - Hypothyroidism [Unknown]
  - Laryngeal oedema [Unknown]
  - Osteochondrosis [Unknown]
  - Toxicity to various agents [Unknown]
  - Spinal osteoarthritis [Unknown]
  - Intervertebral disc disorder [Unknown]
  - Fatigue [Unknown]
  - Dysphagia [Unknown]
  - Sensation of foreign body [Unknown]
  - Pain in extremity [Unknown]
  - Secretion discharge [Unknown]
  - Dysphonia [Unknown]
  - Decreased appetite [Unknown]
  - Dizziness [Unknown]
  - Presyncope [Unknown]
  - Vestibular disorder [Unknown]

NARRATIVE: CASE EVENT DATE: 20230301
